FAERS Safety Report 7671415-3 (Version None)
Quarter: 2011Q3

REPORT INFORMATION
  Report Type: 
  Country: None (occurrence: None)
  Receive Date: 20110809
  Receipt Date: 20110801
  Transmission Date: 20111222
  Serious: Yes (Other)
  Sender: FDA-Public Use
  Company Number: US-NOVOPROD-329272

PATIENT
  Age: 61 Year
  Sex: Female
  Weight: 67.574 kg

DRUGS (2)
  1. VICTOZA [Suspect]
     Indication: TYPE 2 DIABETES MELLITUS
     Dosage: 1.2 MG, QD
     Route: 058
     Dates: start: 20100901, end: 20110407
  2. LIPITOR [Concomitant]
     Dosage: UNK
     Dates: start: 20110628

REACTIONS (3)
  - PANCREATITIS ACUTE [None]
  - HEPATIC CIRRHOSIS [None]
  - GASTRIC ULCER [None]
